FAERS Safety Report 9961839 (Version 1)
Quarter: 2014Q1

REPORT INFORMATION
  Report Type: Report from Study
  Country: US (occurrence: US)
  Receive Date: 20140305
  Receipt Date: 20140305
  Transmission Date: 20141002
  Serious: No
  Sender: FDA-Public Use
  Company Number: US-ABBVIE-13P-163-1113443-00

PATIENT
  Age: 56 Year
  Sex: Female

DRUGS (8)
  1. HUMIRA [Suspect]
     Indication: RHEUMATOID ARTHRITIS
  2. DIOVAN [Concomitant]
     Indication: HYPERTENSION
     Dosage: 80/12.5 DAILY
  3. LEVOTHYROXINE [Concomitant]
     Indication: HYPOTHYROIDISM
  4. METHOTREXATE [Concomitant]
     Indication: PRODUCT USED FOR UNKNOWN INDICATION
     Dosage: EVERY FRIDAY
  5. IBUPROFEN [Concomitant]
     Indication: ARTHRALGIA
     Dosage: 3 TO 4 TIMES A DAY AS NEEDED
  6. TRAMADOL [Concomitant]
     Indication: ARTHRALGIA
     Dosage: 37.5/325 MG 1 EVERY AM AND 1/2 EVRY PM
  7. VENTOLIN [Concomitant]
     Indication: ASTHMA
     Route: 055
  8. FOLIC ACID [Concomitant]
     Indication: PRODUCT USED FOR UNKNOWN INDICATION

REACTIONS (3)
  - Oropharyngeal pain [Not Recovered/Not Resolved]
  - Fatigue [Not Recovered/Not Resolved]
  - Feeling abnormal [Not Recovered/Not Resolved]
